FAERS Safety Report 18584310 (Version 1)
Quarter: 2020Q4

REPORT INFORMATION
  Report Type: Spontaneous
  Country: CA (occurrence: CA)
  Receive Date: 20201207
  Receipt Date: 20201207
  Transmission Date: 20210114
  Serious: Yes (Hospitalization, Other)
  Sender: FDA-Public Use
  Company Number: CA-AMGEN-CANSP2020196566

PATIENT
  Age: 41 Year
  Sex: Female
  Weight: 108 kg

DRUGS (14)
  1. TALTZ [Suspect]
     Active Substance: IXEKIZUMAB
     Indication: PRODUCT USED FOR UNKNOWN INDICATION
     Dosage: UNK
     Route: 065
  2. COSENTYX [Suspect]
     Active Substance: SECUKINUMAB
     Indication: PRODUCT USED FOR UNKNOWN INDICATION
     Dosage: UNK
     Route: 065
  3. METHYLPREDNISOLONE. [Concomitant]
     Active Substance: METHYLPREDNISOLONE
     Dosage: 100 MILLIGRAM
     Route: 042
  4. HUMIRA [Concomitant]
     Active Substance: ADALIMUMAB
  5. INFLECTRA [Suspect]
     Active Substance: INFLIXIMAB-DYYB
     Indication: PSORIATIC ARTHROPATHY
     Dosage: 520 MILLIGRAM (AT 0, 2, 6 WEEKS, THEN EVERY 8 WEEKS,  THEN EVERY 4 WEEKS)
     Route: 042
     Dates: start: 20181103
  6. BENADRYL [Suspect]
     Active Substance: DIPHENHYDRAMINE HYDROCHLORIDE
     Indication: PRODUCT USED FOR UNKNOWN INDICATION
     Dosage: UNK
     Route: 065
  7. LEFLUNOMIDE. [Concomitant]
     Active Substance: LEFLUNOMIDE
     Dosage: 20 MILLIGRAM
     Dates: end: 201805
  8. HYDROXYCHLOROQUINE [Concomitant]
     Active Substance: HYDROXYCHLOROQUINE
     Dosage: 400 MILLIGRAM
     Dates: end: 201805
  9. DIMENHYDRINATE. [Concomitant]
     Active Substance: DIMENHYDRINATE
     Dosage: 50 MILLIGRAM
     Route: 042
  10. METHOTREXATE. [Concomitant]
     Active Substance: METHOTREXATE
     Dosage: 20 MILLIGRAM
     Dates: start: 201705, end: 201712
  11. OTEZLA [Suspect]
     Active Substance: APREMILAST
     Indication: PRODUCT USED FOR UNKNOWN INDICATION
     Dosage: UNK
     Route: 065
  12. GRAVOL [Suspect]
     Active Substance: DIMENHYDRINATE
     Indication: PRODUCT USED FOR UNKNOWN INDICATION
     Dosage: 50 MILLIGRAM
     Route: 065
  13. DIPHENHYDRAMINE. [Concomitant]
     Active Substance: DIPHENHYDRAMINE
     Dosage: 50 MILLIGRAM
     Route: 042
  14. LITHIUM. [Concomitant]
     Active Substance: LITHIUM

REACTIONS (24)
  - Renal impairment [Unknown]
  - Blood pressure increased [Recovering/Resolving]
  - Pyrexia [Recovered/Resolved]
  - Lip swelling [Recovered/Resolved]
  - Mood altered [Unknown]
  - Drug intolerance [Unknown]
  - Vein rupture [Not Recovered/Not Resolved]
  - Nervousness [Unknown]
  - Pain in extremity [Unknown]
  - Discomfort [Recovered/Resolved]
  - Poor venous access [Not Recovered/Not Resolved]
  - Arthralgia [Unknown]
  - Vomiting [Recovering/Resolving]
  - Anaemia [Unknown]
  - Erythema [Unknown]
  - Diarrhoea [Recovered/Resolved]
  - Anaphylactic shock [Unknown]
  - Anxiety [Unknown]
  - Weight decreased [Unknown]
  - Body temperature increased [Recovering/Resolving]
  - Weight increased [Unknown]
  - Malaise [Recovering/Resolving]
  - Fatigue [Unknown]
  - Nausea [Recovering/Resolving]

NARRATIVE: CASE EVENT DATE: 2018
